FAERS Safety Report 5675313-6 (Version None)
Quarter: 2008Q2

REPORT INFORMATION
  Report Type: 
  Country: None (occurrence: None)
  Receive Date: 20080307
  Receipt Date: 20070822
  Transmission Date: 20081010
  Serious: Yes (Other)
  Sender: FDA-Public Use
  Company Number: US200708004816

PATIENT
  Sex: Female

DRUGS (1)
  1. GEMZAR [Suspect]
     Indication: OVARIAN CANCER

REACTIONS (1)
  - CARDIAC FAILURE CONGESTIVE [None]
